FAERS Safety Report 17139738 (Version 9)
Quarter: 2020Q3

REPORT INFORMATION
  Report Type: Report from Study
  Country: US (occurrence: US)
  Receive Date: 20191211
  Receipt Date: 20200816
  Transmission Date: 20201102
  Serious: Yes (Other)
  Sender: FDA-Public Use
  Company Number: NVSC2019US065643

PATIENT
  Age: 73 Year
  Sex: Female

DRUGS (2)
  1. BEOVU [Suspect]
     Active Substance: BROLUCIZUMAB-DBLL
     Dosage: UNK
     Route: 047
     Dates: start: 20200206
  2. BEOVU [Suspect]
     Active Substance: BROLUCIZUMAB-DBLL
     Indication: NEOVASCULAR AGE-RELATED MACULAR DEGENERATION
     Dosage: UNK, Q4W
     Route: 047
     Dates: start: 20191205

REACTIONS (13)
  - Iritis [Not Recovered/Not Resolved]
  - Drug hypersensitivity [Unknown]
  - Vitreous floaters [Unknown]
  - Visual acuity reduced [Unknown]
  - Vitritis [Unknown]
  - Drug ineffective [Not Recovered/Not Resolved]
  - Eye haemorrhage [Unknown]
  - Blindness [Not Recovered/Not Resolved]
  - Conjunctivitis [Unknown]
  - Injection site pain [Recovering/Resolving]
  - Uveitis [Unknown]
  - Eye inflammation [Unknown]
  - Anterior chamber flare [Unknown]

NARRATIVE: CASE EVENT DATE: 20191205
